FAERS Safety Report 14367019 (Version 1)
Quarter: 2018Q1

REPORT INFORMATION
  Report Type: Spontaneous
  Country: FR (occurrence: FR)
  Receive Date: 20180109
  Receipt Date: 20180109
  Transmission Date: 20180509
  Serious: Yes (Other)
  Sender: FDA-Public Use
  Company Number: FR-AMGEN-FRASP2018001301

PATIENT
  Sex: Female

DRUGS (7)
  1. PROLIA [Suspect]
     Active Substance: DENOSUMAB
     Indication: OSTEOPOROSIS
     Dosage: UNK
     Route: 065
     Dates: start: 201509
  2. DAFALGAN [Concomitant]
     Active Substance: ACETAMINOPHEN
     Indication: PAIN
     Dosage: (PUNCTUALLY, IN CASE OF PAIN),
  3. FLECAINE LP [Concomitant]
     Active Substance: FLECAINIDE
     Indication: CARDIAC DISORDER
     Dosage: 100
  4. MOPRAL [Concomitant]
     Active Substance: OMEPRAZOLE
  5. METEOXANE [Concomitant]
     Active Substance: AMOBARBITAL\BELLADONNA LEAF\DIMETHICONE\ERGOTAMINE TARTRATE
     Indication: GASTROINTESTINAL PAIN
  6. UV [Concomitant]
     Active Substance: .ALPHA.-TOCOPHEROL ACETATE\OCTINOXATE\OXYBENZONE\PANTHENOL\TITANIUM DIOXIDE
  7. TEMESTA (LORAZEPAM) [Concomitant]
     Active Substance: LORAZEPAM
     Indication: ANXIETY

REACTIONS (2)
  - Hypersensitivity [Unknown]
  - Myelodysplastic syndrome [Unknown]
